FAERS Safety Report 9296786 (Version 2)
Quarter: 2013Q2

REPORT INFORMATION
  Report Type: Report from Study
  Country: US (occurrence: US)
  Receive Date: 20130517
  Receipt Date: 20130604
  Transmission Date: 20140414
  Serious: No
  Sender: FDA-Public Use
  Company Number: US-US-EMD SERONO, INC.-7211145

PATIENT
  Age: 12 Year
  Sex: Female
  Weight: 75 kg

DRUGS (7)
  1. SAIZEN [(SOMATROPIN (RDNA ORIGIN) FOR INJECTION)] [Suspect]
     Indication: TURNER^S SYNDROME
     Route: 058
     Dates: start: 20110910
  2. SAIZEN [(SOMATROPIN (RDNA ORIGIN) FOR INJECTION)] [Suspect]
     Route: 058
  3. SAIZEN [(SOMATROPIN (RDNA ORIGIN) FOR INJECTION)] [Suspect]
     Route: 058
     Dates: start: 20121113
  4. SAIZEN [(SOMATROPIN (RDNA ORIGIN) FOR INJECTION)] [Suspect]
     Route: 058
     Dates: start: 20130313
  5. PREMARIN                           /00073001/ [Concomitant]
     Indication: PUBERTY
     Route: 048
  6. PREMARIN                           /00073001/ [Concomitant]
     Route: 048
     Dates: start: 20130313
  7. ENBREL [Concomitant]
     Indication: PSORIASIS
     Route: 058

REACTIONS (10)
  - Scoliosis [Unknown]
  - Osteopenia [Unknown]
  - Vitamin D decreased [Unknown]
  - Hepatic steatosis [Unknown]
  - Ear infection [Unknown]
  - Decreased appetite [Unknown]
  - Blood cortisol decreased [Unknown]
  - Malaise [Unknown]
  - Fatigue [Unknown]
  - Treatment noncompliance [Unknown]
